FAERS Safety Report 7781223-0 (Version None)
Quarter: 2011Q3

REPORT INFORMATION
  Report Type: 
  Country: None (occurrence: None)
  Receive Date: 20110927
  Receipt Date: 20110920
  Transmission Date: 20111222
  Serious: Yes (Other)
  Sender: FDA-Public Use
  Company Number: GB-B.I. PHARMACEUTICALS,INC./RIDGEFIELD-2011-UK-00998UK

PATIENT
  Sex: Female

DRUGS (14)
  1. CEFUROXIN [Concomitant]
     Dosage: 750 MG
  2. ACETAMINOPHEN [Concomitant]
  3. CLONIDINE [Concomitant]
     Dosage: 0.1 MG
  4. ROSUVASTATIN [Concomitant]
     Dosage: 5 MG
  5. FELODIPINE [Concomitant]
     Dosage: 10 MG
  6. OMEPRAZOLE [Concomitant]
     Dosage: 20 MG
  7. PERINDOPRIL ERBUMINE [Concomitant]
     Dosage: 4 MG
  8. OXYCODONE IMMEDIATE RELEASE [Concomitant]
     Dosage: 5 MG
  9. BENDROFLUMETHIAZIDE [Concomitant]
  10. AMOXICILLIN AND CLAVULANATE POTASSIUM [Concomitant]
     Dosage: 1.2 G
  11. POTASSIUM CITRATE [Concomitant]
     Dosage: 5-10 ML
  12. DABIGATRAN [Suspect]
     Indication: KNEE ARTHROPLASTY
     Dosage: 110 MG
  13. DIHYDROCODEINE BITARTRATE INJ [Concomitant]
     Dosage: 30 MG
  14. OXYCODONE MODIFIED RELEASE [Concomitant]
     Dosage: 10 MG

REACTIONS (1)
  - PULMONARY EMBOLISM [None]
